FAERS Safety Report 20569655 (Version 1)
Quarter: 2022Q1

REPORT INFORMATION
  Report Type: Spontaneous
  Country: GE (occurrence: GE)
  Receive Date: 20220309
  Receipt Date: 20220309
  Transmission Date: 20220423
  Serious: Yes (Hospitalization, Other)
  Sender: FDA-Public Use
  Company Number: GE-SUN PHARMACEUTICAL INDUSTRIES LTD-2019R1-230336

PATIENT
  Age: 28 Year
  Sex: Male

DRUGS (1)
  1. PREDNISONE [Suspect]
     Active Substance: PREDNISONE
     Indication: Steroid therapy
     Dosage: UNK
     Route: 065

REACTIONS (4)
  - Sinusitis fungal [Unknown]
  - Infection [Unknown]
  - Treatment noncompliance [Unknown]
  - Disease recurrence [Unknown]
